FAERS Safety Report 21335827 (Version 1)
Quarter: 2022Q3

REPORT INFORMATION
  Report Type: Spontaneous
  Country: US (occurrence: US)
  Receive Date: 20220915
  Receipt Date: 20220915
  Transmission Date: 20221026
  Serious: Yes (Other)
  Sender: FDA-Public Use
  Company Number: US-NOVOPROD-956880

PATIENT
  Age: 77 Year
  Sex: Male

DRUGS (2)
  1. OZEMPIC [Suspect]
     Active Substance: SEMAGLUTIDE
     Dosage: 1.75 MG
     Route: 058
  2. OZEMPIC [Suspect]
     Active Substance: SEMAGLUTIDE
     Indication: Product used for unknown indication
     Dosage: 1 MG QW
     Route: 058

REACTIONS (8)
  - Bladder cancer [Recovered/Resolved]
  - Gastric cancer [Recovered/Resolved]
  - Monoplegia [Unknown]
  - Gastroenteritis viral [Unknown]
  - Urinary tract infection [Unknown]
  - COVID-19 [Unknown]
  - Poor quality sleep [Unknown]
  - Incorrect dose administered [Unknown]
